FAERS Safety Report 12759375 (Version 1)
Quarter: 2016Q3

REPORT INFORMATION
  Report Type: Spontaneous
  Country: US (occurrence: US)
  Receive Date: 20160919
  Receipt Date: 20160919
  Transmission Date: 20161109
  Serious: No
  Sender: FDA-Public Use
  Company Number: US-JUBILANT HOLLISTERSTIER LLC-1057448

PATIENT
  Age: 37 Year
  Sex: Female

DRUGS (17)
  1. ANIMAL ALLERGENS, DOG HAIR AND DANDER CANIS SPP. [Suspect]
     Active Substance: CANIS LUPUS FAMILIARIS DANDER\CANIS LUPUS FAMILIARIS HAIR
     Dates: start: 20160302, end: 20160302
  2. AMERICAN BEECH POLLEN [Suspect]
     Active Substance: FAGUS GRANDIFOLIA POLLEN
     Dates: start: 20160302, end: 20160302
  3. DOCK/SORREL MIXTURE [Suspect]
     Active Substance: RUMEX ACETOSELLA POLLEN\RUMEX CRISPUS POLLEN
     Dates: start: 20160302, end: 20160302
  4. POLLENS - TREES, BOXELDER/MAPLE MIX [Suspect]
     Active Substance: ACER NEGUNDO POLLEN\ACER RUBRUM POLLEN\ACER SACCHARUM POLLEN
     Dates: start: 20160302, end: 20160302
  5. STERILE DILUENT FOR ALLERGENIC EXTRACT (ALBUMIN (HUMAN)\PHENOL) [Suspect]
     Active Substance: ALBUMIN HUMAN\PHENOL
     Dates: start: 20160302, end: 20160302
  6. MIXTURE OF STANDARDIZED MITES [Suspect]
     Active Substance: DERMATOPHAGOIDES FARINAE\DERMATOPHAGOIDES PTERONYSSINUS
     Dates: start: 20160302, end: 20160302
  7. SWEET GUM POLLEN [Suspect]
     Active Substance: LIQUIDAMBAR STYRACIFLUA POLLEN
     Dates: start: 20160302, end: 20160302
  8. BAHIA GRASS POLLEN [Suspect]
     Active Substance: PASPALUM NOTATUM POLLEN
     Dates: start: 20160302, end: 20160302
  9. MOUNTAIN CEDAR POLLEN [Suspect]
     Active Substance: JUNIPERUS ASHEI POLLEN
     Dates: start: 20160302, end: 20160302
  10. STANDARDIZED GRASS POLLEN, GRASS MIX 7 [Suspect]
     Active Substance: AGROSTIS GIGANTEA POLLEN\ANTHOXANTHUM ODORATUM POLLEN\DACTYLIS GLOMERATA POLLEN\FESTUCA PRATENSIS POLLEN\LOLIUM PERENNE POLLEN\PHLEUM PRATENSE POLLEN\POA PRATENSIS POLLEN
     Dates: start: 20160302, end: 20160302
  11. MIXED RAGWEED [Suspect]
     Active Substance: AMBROSIA ARTEMISIIFOLIA POLLEN\AMBROSIA TRIFIDA POLLEN
     Dates: start: 20160302, end: 20160302
  12. STANDARDIZED CAT HAIR [Suspect]
     Active Substance: FELIS CATUS HAIR
     Dates: start: 20160302, end: 20160302
  13. POLLENS - WEEDS AND GARDEN PLANTS, SAGEBRUSH, MUGWORT ARTEMISIA VULGARIS [Suspect]
     Active Substance: ARTEMISIA VULGARIS POLLEN
     Dates: start: 20160302, end: 20160302
  14. OAK MIXTURE [Suspect]
     Active Substance: QUERCUS ALBA POLLEN\QUERCUS MACROCARPA POLLEN\QUERCUS MUEHLENBERGII POLLEN\QUERCUS PALUSTRIS POLLEN\QUERCUS RUBRA POLLEN\QUERCUS STELLATA POLLEN\QUERCUS VELUTINA POLLEN\QUERCUS VIRGINIANA POLLEN
     Dates: start: 20160302, end: 20160302
  15. POLLENS - TREES, BOXELDER/MAPLE MIX [Suspect]
     Active Substance: ACER NEGUNDO POLLEN\ACER RUBRUM POLLEN\ACER SACCHARUM POLLEN
     Indication: HYPERSENSITIVITY
     Dates: start: 20160302, end: 20160302
  16. POLLENS - TREES, ELM, AMERICAN ULMUS AMERICANA [Suspect]
     Active Substance: ULMUS AMERICANA POLLEN
     Dates: start: 20160302, end: 20160302
  17. ROUGH REDROOT PIGWEED POLLEN [Suspect]
     Active Substance: AMARANTHUS RETROFLEXUS POLLEN
     Dates: start: 20160302, end: 20160302

REACTIONS (4)
  - Eye pruritus [Recovered/Resolved]
  - Chest discomfort [Recovered/Resolved]
  - Injection site erythema [Recovered/Resolved]
  - Injection site warmth [Recovered/Resolved]

NARRATIVE: CASE EVENT DATE: 20160302
